FAERS Safety Report 25351307 (Version 1)
Quarter: 2025Q2

REPORT INFORMATION
  Report Type: Report from Study
  Country: US (occurrence: US)
  Receive Date: 20250523
  Receipt Date: 20250523
  Transmission Date: 20250717
  Serious: Yes (Death, Hospitalization, Other)
  Sender: ROCHE
  Company Number: US-ROCHE-10000288043

PATIENT

DRUGS (5)
  1. ATEZOLIZUMAB [Suspect]
     Active Substance: ATEZOLIZUMAB
     Indication: Neoplasm
     Route: 065
  2. PEMBROLIZUMAB [Suspect]
     Active Substance: PEMBROLIZUMAB
     Indication: Neoplasm
     Route: 065
  3. NIVOLUMAB [Suspect]
     Active Substance: NIVOLUMAB
     Indication: Neoplasm
     Route: 065
  4. IPILIMUMAB [Suspect]
     Active Substance: IPILIMUMAB
     Indication: Neoplasm
     Route: 065
  5. DURVALUMAB [Suspect]
     Active Substance: DURVALUMAB
     Indication: Neoplasm
     Route: 065

REACTIONS (13)
  - Pneumonitis [Fatal]
  - Colitis [Fatal]
  - Myocarditis [Fatal]
  - Adrenal insufficiency [Unknown]
  - Myositis [Unknown]
  - Myasthenia gravis [Unknown]
  - Nephritis [Unknown]
  - Hepatitis [Unknown]
  - Hypothyroidism [Unknown]
  - Encephalitis [Unknown]
  - Neuropathy peripheral [Unknown]
  - Skin toxicity [Unknown]
  - Mucosal toxicity [Unknown]
